FAERS Safety Report 4698668-8 (Version None)
Quarter: 2005Q2

REPORT INFORMATION
  Report Type: 
  Country: None (occurrence: None)
  Receive Date: 20050622
  Receipt Date: 20050613
  Transmission Date: 20051028
  Serious: Yes (Hospitalization)
  Sender: FDA-Public Use
  Company Number: COV2-2005-00058

PATIENT
  Age: 61 Year
  Sex: Female
  Weight: 79.2 kg

DRUGS (14)
  1. FOSRENOL [Suspect]
     Indication: HYPERPHOSPHATAEMIA
     Dosage: 750 MG, 3X/DAY; TID; ORAL
     Route: 048
     Dates: start: 20050406, end: 20050603
  2. GLYBURDIE (GLIBENCLAMIDE) [Concomitant]
  3. INSULIN HUMULIN 70/30 (INSULIN HUMAN, INSULIN HUMAN INJECTION, ISOPHAN [Concomitant]
  4. NORVASC/DEN/(AMLODIPINE BESILATE) [Concomitant]
  5. NEPHRO-VITE RX (ASCORBIC ACID, FOLIC ACID, VITAMIN B NOS) [Concomitant]
  6. COZAAR [Concomitant]
  7. VITAMIN B12 [Concomitant]
  8. IMODIUM ^JANSSEN^ (LOPERAMIDE HYDROCHLORIDE) TABLET [Concomitant]
  9. ASPIRIN [Concomitant]
  10. COUMADIN [Concomitant]
  11. FOLIC ACID [Concomitant]
  12. ARANESP [Concomitant]
  13. ZEMPLAR [Concomitant]
  14. FERRLECIT/GFR/(FERRIC SODIUM GLUCONATE COMPLEX) [Concomitant]

REACTIONS (20)
  - ASTHENIA [None]
  - BODY TEMPERATURE DECREASED [None]
  - CLOSTRIDIUM COLITIS [None]
  - DIALYSIS [None]
  - DISEASE PROGRESSION [None]
  - EJECTION FRACTION DECREASED [None]
  - HAEMATOCRIT DECREASED [None]
  - HAEMOGLOBIN DECREASED [None]
  - HYPOTENSION [None]
  - INTERNATIONAL NORMALISED RATIO INCREASED [None]
  - ISCHAEMIC CARDIOMYOPATHY [None]
  - LABORATORY TEST ABNORMAL [None]
  - MYOCARDIAL INFARCTION [None]
  - PLATELET COUNT DECREASED [None]
  - PNEUMONIA ASPIRATION [None]
  - PYREXIA [None]
  - REFUSAL OF TREATMENT BY PATIENT [None]
  - SEPSIS [None]
  - VOMITING [None]
  - WHITE BLOOD CELL COUNT INCREASED [None]
